FAERS Safety Report 6782286 (Version 1)
Quarter: 2020Q3

REPORT INFORMATION
  Report Type: Report from Study
  Country: DE (occurrence: DE)
  Receive Date: 20081008
  Receipt Date: 20081008
  Transmission Date: 20201104
  Serious: Yes (Life-Threatening, Hospitalization)
  Sender: FDA-Public Use
  Company Number: DE-ROCHE-588345

PATIENT
  Age: 68 Year
  Sex: Female
  Weight: 125 kg

DRUGS (13)
  1. CARBIDOPA. [Concomitant]
     Active Substance: CARBIDOPA
     Route: 048
  2. DOMPERIDONE [Concomitant]
     Active Substance: DOMPERIDONE
     Route: 048
  3. LEVODOPA [Concomitant]
     Active Substance: LEVODOPA
     Route: 048
  4. ENTACAPONE. [Concomitant]
     Active Substance: ENTACAPONE
     Dosage: DRUG:ENTACOPAN
     Route: 048
  5. TORSEMIDE. [Concomitant]
     Active Substance: TORSEMIDE
     Route: 048
  6. VALSARTAN. [Concomitant]
     Active Substance: VALSARTAN
     Route: 048
  7. AMLODIPINE [Concomitant]
     Active Substance: AMLODIPINE BESYLATE
     Route: 048
  8. LEVODOPA [Concomitant]
     Active Substance: LEVODOPA
     Route: 048
  9. LEVOTHYROXINE SODIUM. [Concomitant]
     Active Substance: LEVOTHYROXINE SODIUM
     Route: 048
  10. BISOPROLOL [Concomitant]
     Active Substance: BISOPROLOL
     Route: 048
  11. CARBIDOPA. [Concomitant]
     Active Substance: CARBIDOPA
     Route: 048
  12. ENTACAPONE. [Concomitant]
     Active Substance: ENTACAPONE
     Route: 048
  13. IBANDRONIC ACID. [Suspect]
     Active Substance: IBANDRONIC ACID
     Route: 048
     Dates: start: 2007, end: 200710

REACTIONS (2)
  - Renal failure [Recovered/Resolved]
  - Sepsis [Recovered/Resolved]

NARRATIVE: CASE EVENT DATE: 20071005
